FAERS Safety Report 19447613 (Version 1)
Quarter: 2021Q2

REPORT INFORMATION
  Report Type: Spontaneous
  Country: ES (occurrence: ES)
  Receive Date: 20210622
  Receipt Date: 20210622
  Transmission Date: 20210717
  Serious: Yes (Hospitalization)
  Sender: FDA-Public Use
  Company Number: ES-TEVA-2021-ES-1923569

PATIENT
  Age: 55 Year
  Sex: Female

DRUGS (4)
  1. CIMZIA [Interacting]
     Active Substance: CERTOLIZUMAB PEGOL
     Indication: RHEUMATOID ARTHRITIS
     Dosage: INJECTABLE SOLUTION IN DOSE DISPENSER CARTRIDGE , UNIT DOSE : 200 MCG
     Route: 058
     Dates: start: 20200714, end: 20200825
  2. HYRIMOZ [Interacting]
     Active Substance: ADALIMUMAB-ADAZ
     Indication: RHEUMATOID ARTHRITIS
     Dosage: 40 MCG
     Route: 058
     Dates: start: 20191003, end: 20200714
  3. URBASON 16 MG COMPRIMIDOS, 30 COMPRIMIDOS [Interacting]
     Active Substance: METHYLPREDNISOLONE
     Indication: RHEUMATOID ARTHRITIS
     Dosage: 4 MG
     Route: 048
     Dates: start: 20200720
  4. LEFLUNOMIDA (7414A) [Suspect]
     Active Substance: LEFLUNOMIDE
     Indication: RHEUMATOID ARTHRITIS
     Dosage: 20 MG
     Route: 048
     Dates: start: 20191001, end: 20200825

REACTIONS (2)
  - Septic arthritis staphylococcal [Recovered/Resolved]
  - Drug interaction [Unknown]

NARRATIVE: CASE EVENT DATE: 20200725
